FAERS Safety Report 6245168-X (Version None)
Quarter: 2009Q2

REPORT INFORMATION
  Report Type: 
  Country: None (occurrence: None)
  Receive Date: 20090623
  Receipt Date: 20090623
  Transmission Date: 20091009
  Serious: Yes (Life-Threatening, Disabling)
  Sender: FDA-Public Use
  Company Number: None

PATIENT
  Sex: Male
  Weight: 104.3273 kg

DRUGS (2)
  1. CHANTIX [Suspect]
     Dosage: 0.5 1 X 3, 2 X 4 A DAY PO
     Route: 048
     Dates: start: 20081116, end: 20081121
  2. CHANTIX [Suspect]
     Dosage: 1MG 2 X DAY  7 DAYS PO
     Route: 048
     Dates: start: 20081122, end: 20081215

REACTIONS (1)
  - DIABETES MELLITUS [None]
